FAERS Safety Report 10760765 (Version 1)
Quarter: 2015Q1

REPORT INFORMATION
  Report Type: Spontaneous
  Country: FR (occurrence: FR)
  Receive Date: 20150204
  Receipt Date: 20150204
  Transmission Date: 20150721
  Serious: Yes (Hospitalization)
  Sender: FDA-Public Use
  Company Number: FR-ASTRAZENECA-2015SE09944

PATIENT
  Age: 19719 Day
  Sex: Female

DRUGS (3)
  1. IMOVANE [Suspect]
     Active Substance: ZOPICLONE
     Route: 048
     Dates: start: 20141220, end: 20141220
  2. XANAX [Suspect]
     Active Substance: ALPRAZOLAM
     Route: 048
     Dates: start: 20141220, end: 20141220
  3. XEROQUEL SR [Suspect]
     Active Substance: QUETIAPINE FUMARATE
     Route: 048
     Dates: start: 20141220, end: 20141220

REACTIONS (5)
  - Confusional state [Unknown]
  - Blood creatine phosphokinase increased [Recovered/Resolved]
  - Overdose [Recovered/Resolved]
  - Anticholinergic syndrome [Recovered/Resolved]
  - Drug abuse [Unknown]

NARRATIVE: CASE EVENT DATE: 20141220
